FAERS Safety Report 6443501-7 (Version None)
Quarter: 2009Q4

REPORT INFORMATION
  Report Type: 
  Country: None (occurrence: None)
  Receive Date: 20091113
  Receipt Date: 20091109
  Transmission Date: 20100525
  Serious: Yes (Life-Threatening, Hospitalization, Other)
  Sender: FDA-Public Use
  Company Number: TPA2009A03514

PATIENT
  Age: 62 Year
  Sex: Female
  Weight: 70.3075 kg

DRUGS (2)
  1. KAPIDEX [Suspect]
     Indication: GASTROOESOPHAGEAL REFLUX DISEASE
     Dosage: 60 MG, 1 IN 1 D, PER ORAL
     Route: 048
     Dates: start: 20090901, end: 20091031
  2. MAXZIDE [Concomitant]

REACTIONS (5)
  - ABDOMINAL DISTENSION [None]
  - ANAPHYLACTIC SHOCK [None]
  - CONSTIPATION [None]
  - FALL [None]
  - NAUSEA [None]
